FAERS Safety Report 7730581-1 (Version None)
Quarter: 2011Q3

REPORT INFORMATION
  Report Type: 
  Country: None (occurrence: None)
  Receive Date: 20110906
  Receipt Date: 20110823
  Transmission Date: 20111222
  Serious: Yes (Other)
  Sender: FDA-Public Use
  Company Number: NO-NOVOPROD-327978

PATIENT

DRUGS (5)
  1. LANTUS [Concomitant]
     Dosage: 22 IU, QD
     Route: 065
  2. VICTOZA [Suspect]
     Dosage: 1.2 MG, QD
     Route: 065
     Dates: start: 20110401
  3. VICTOZA [Suspect]
     Indication: TYPE 2 DIABETES MELLITUS
     Dosage: 0.6 MG, QD
     Route: 065
     Dates: start: 20110301
  4. VICTOZA [Suspect]
     Dosage: 0.6 MG, QD
     Route: 065
     Dates: start: 20110401
  5. METFORMIN HCL [Concomitant]
     Dosage: 500 MG X 3
     Route: 065

REACTIONS (6)
  - NAUSEA [None]
  - VOMITING [None]
  - DECREASED APPETITE [None]
  - WEIGHT DECREASED [None]
  - DIARRHOEA [None]
  - BLOOD GLUCOSE INCREASED [None]
